FAERS Safety Report 9993662 (Version 2)
Quarter: 2014Q2

REPORT INFORMATION
  Report Type: Report from Study
  Country: KE (occurrence: KE)
  Receive Date: 20140310
  Receipt Date: 20140506
  Transmission Date: 20141212
  Serious: Yes (Death, Life-Threatening, Other)
  Sender: FDA-Public Use
  Company Number: KE-GILEAD-2014-0096093

PATIENT
  Age: 35 Year
  Sex: Female

DRUGS (29)
  1. TENOFOVIR DISOPROXIL FUMARATE [Suspect]
     Indication: HIV INFECTION
     Dosage: UNK
     Route: 065
     Dates: start: 20140114, end: 20140227
  2. EMTRICITABINE [Suspect]
     Indication: HIV INFECTION
     Dosage: UNK
     Route: 065
     Dates: start: 20140114, end: 20140227
  3. EFAVIRENZ [Suspect]
     Indication: HIV INFECTION
     Dosage: UNK
     Route: 065
     Dates: start: 20140114, end: 20140227
  4. COTRIMOXAZOLE [Interacting]
     Indication: PRODUCT USED FOR UNKNOWN INDICATION
     Dosage: UNK
     Route: 065
     Dates: start: 20131118, end: 20140227
  5. CIPROFLOXACIN [Interacting]
     Indication: PRODUCT USED FOR UNKNOWN INDICATION
     Dosage: UNK
     Route: 065
     Dates: start: 20140114, end: 20140121
  6. TINIDAZOLE [Suspect]
     Indication: PRODUCT USED FOR UNKNOWN INDICATION
     Dosage: UNK
     Route: 065
     Dates: start: 20140114, end: 20140116
  7. PIRITON [Suspect]
     Indication: PRODUCT USED FOR UNKNOWN INDICATION
     Dosage: UNK
     Route: 065
     Dates: start: 20140114, end: 20140121
  8. PYRIDOXINE [Interacting]
     Indication: PRODUCT USED FOR UNKNOWN INDICATION
     Dosage: UNK
     Route: 065
     Dates: start: 20140127, end: 20140209
  9. AMITRIPTYLINE [Suspect]
     Indication: PRODUCT USED FOR UNKNOWN INDICATION
     Dosage: UNK
     Route: 065
     Dates: start: 20140127, end: 20140209
  10. AMOXYL [Suspect]
     Indication: PRODUCT USED FOR UNKNOWN INDICATION
     Dosage: UNK
     Route: 065
     Dates: start: 20140127, end: 20140201
  11. LACTULOSE [Suspect]
     Indication: CONSTIPATION
     Dosage: UNK
     Route: 065
     Dates: start: 20140204, end: 20140227
  12. DOXYCYCLINE [Suspect]
     Indication: URINARY TRACT INFECTION
     Dosage: 100 MG, BID
     Route: 065
     Dates: start: 20140131, end: 20140207
  13. DOXYCYCLINE [Suspect]
     Indication: SEXUALLY TRANSMITTED DISEASE
  14. METRONIDAZOLE [Suspect]
     Indication: PRODUCT USED FOR UNKNOWN INDICATION
     Dosage: UNK
     Route: 065
     Dates: start: 20140131, end: 20140226
  15. FLUCONAZOLE [Suspect]
     Indication: ORAL CANDIDIASIS
     Dosage: 200 MG, QD
     Route: 065
     Dates: start: 20140131, end: 20140227
  16. ACYCLOVIR                          /00587301/ [Interacting]
     Indication: ENCEPHALITIS
     Dosage: 800 MG, 5/DAY
     Route: 065
     Dates: start: 20140131, end: 20140224
  17. MYOLGIN                            /00214401/ [Suspect]
     Indication: PRODUCT USED FOR UNKNOWN INDICATION
     Dosage: UNK
     Route: 065
     Dates: start: 20140211, end: 20140227
  18. DICLOFENAC [Interacting]
     Indication: PRODUCT USED FOR UNKNOWN INDICATION
     Dosage: UNK
     Route: 065
     Dates: start: 20140210, end: 20140211
  19. CEFTRIAXONE [Interacting]
     Indication: URINARY TRACT INFECTION
     Dosage: 250 MG, UNK
     Route: 040
     Dates: start: 20140217, end: 20140227
  20. CEFTRIAXONE [Interacting]
     Indication: SEXUALLY TRANSMITTED DISEASE
     Dosage: 2 G, BID
     Route: 041
  21. OSTEOCARE [Suspect]
     Indication: PRODUCT USED FOR UNKNOWN INDICATION
     Dosage: UNK
     Route: 065
     Dates: start: 20140218, end: 20140227
  22. OMEPRAZOLE [Suspect]
     Indication: PRODUCT USED FOR UNKNOWN INDICATION
     Dosage: UNK
     Route: 065
     Dates: start: 20140218, end: 20140224
  23. PREDNISOLONE [Interacting]
     Indication: PRODUCT USED FOR UNKNOWN INDICATION
     Dosage: UNK
     Route: 065
     Dates: start: 20140218, end: 20140224
  24. RIFAMPICIN [Interacting]
     Indication: PRODUCT USED FOR UNKNOWN INDICATION
     Dosage: UNK
     Route: 065
     Dates: start: 20140217, end: 20140227
  25. ISONIAZID [Suspect]
     Indication: PRODUCT USED FOR UNKNOWN INDICATION
     Dosage: UNK
     Route: 065
     Dates: start: 20140217, end: 20140227
  26. PYRAZINAMIDE [Suspect]
     Indication: PRODUCT USED FOR UNKNOWN INDICATION
     Dosage: UNK
     Route: 065
     Dates: start: 20140217, end: 20140227
  27. ETHAMBUTOL [Suspect]
     Indication: PRODUCT USED FOR UNKNOWN INDICATION
     Dosage: UNK
     Route: 065
     Dates: start: 20140217, end: 20140227
  28. FLAGYL                             /00012501/ [Concomitant]
     Indication: URINARY TRACT INFECTION
  29. FLAGYL                             /00012501/ [Concomitant]
     Indication: SEXUALLY TRANSMITTED DISEASE

REACTIONS (5)
  - Meningitis tuberculous [Fatal]
  - Meningitis bacterial [Not Recovered/Not Resolved]
  - Neuropathy peripheral [Not Recovered/Not Resolved]
  - Myelitis transverse [Not Recovered/Not Resolved]
  - Renal failure acute [Not Recovered/Not Resolved]
